FAERS Safety Report 16276178 (Version 2)
Quarter: 2019Q3

REPORT INFORMATION
  Report Type: Spontaneous
  Country: US (occurrence: US)
  Receive Date: 20190506
  Receipt Date: 20190910
  Transmission Date: 20191004
  Serious: No
  Sender: FDA-Public Use
  Company Number: US-SA-2019SA121875

PATIENT
  Age: 12 Year
  Sex: Female

DRUGS (2)
  1. ADMELOG [Suspect]
     Active Substance: INSULIN LISPRO
     Indication: TYPE 1 DIABETES MELLITUS
     Dosage: 30 U, QD
     Route: 065
  2. APIDRA [Suspect]
     Active Substance: INSULIN GLULISINE
     Dosage: 30 U, QD
     Route: 065
     Dates: start: 201808

REACTIONS (1)
  - Drug ineffective [Unknown]
